FAERS Safety Report 24786558 (Version 2)
Quarter: 2025Q2

REPORT INFORMATION
  Report Type: Report from Study
  Country: CA (occurrence: CA)
  Receive Date: 20241230
  Receipt Date: 20250527
  Transmission Date: 20250716
  Serious: Yes (Hospitalization, Other)
  Sender: TAKEDA
  Company Number: CA-TAKEDA-2024TUS129644

PATIENT
  Sex: Male
  Weight: 100.5 kg

DRUGS (10)
  1. VEDOLIZUMAB [Suspect]
     Active Substance: VEDOLIZUMAB
     Indication: Colitis ulcerative
  2. LEVOTHYROXINE [Concomitant]
     Active Substance: LEVOTHYROXINE
     Indication: Hypothyroidism
  3. FINASTERIDE [Concomitant]
     Active Substance: FINASTERIDE
  4. TERAZOSIN [Concomitant]
     Active Substance: TERAZOSIN HYDROCHLORIDE
  5. APIXABAN [Concomitant]
     Active Substance: APIXABAN
     Indication: Atrial fibrillation
  6. METOPROLOL [Concomitant]
     Active Substance: METOPROLOL
  7. ALDACTONE [Concomitant]
     Active Substance: SPIRONOLACTONE
  8. ATACAND [Concomitant]
     Active Substance: CANDESARTAN CILEXETIL
  9. DAPAGLIFLOZIN [Concomitant]
     Active Substance: DAPAGLIFLOZIN
  10. FUROSEMIDE [Concomitant]
     Active Substance: FUROSEMIDE

REACTIONS (3)
  - Atrial fibrillation [Unknown]
  - Bradycardia [Unknown]
  - Joint swelling [Unknown]
